FAERS Safety Report 23782044 (Version 2)
Quarter: 2024Q2

REPORT INFORMATION
  Report Type: Spontaneous
  Country: IT (occurrence: IT)
  Receive Date: 20240425
  Receipt Date: 20240630
  Transmission Date: 20240716
  Serious: Yes (Life-Threatening, Hospitalization, Other)
  Sender: FDA-Public Use
  Company Number: None

PATIENT
  Age: 64 Year
  Sex: Male

DRUGS (2)
  1. AZACITIDINE [Suspect]
     Active Substance: AZACITIDINE
     Indication: Myelodysplastic syndrome
     Dosage: CYCLICAL AZACITIDINE, START DATE: AUG-2020
  2. ETANERCEPT [Suspect]
     Active Substance: ETANERCEPT
     Indication: Psoriatic arthropathy
     Dosage: HE RECEIVED ETANERCEPT FOR PSORIATIC ARTHRITIS BETWEEN JAN-2018 AND NOV-2019
     Dates: start: 201801, end: 201911

REACTIONS (8)
  - Haemophagocytic lymphohistiocytosis [Recovered/Resolved]
  - Gastritis haemorrhagic [Recovered/Resolved]
  - Ulcerative duodenitis [Recovered/Resolved]
  - Oesophageal ulcer haemorrhage [Recovered/Resolved]
  - Gastritis [Recovered/Resolved]
  - Ulcerative gastritis [Recovered/Resolved]
  - Condition aggravated [Unknown]
  - Drug ineffective [Unknown]

NARRATIVE: CASE EVENT DATE: 20191101
